FAERS Safety Report 16766138 (Version 2)
Quarter: 2019Q3

REPORT INFORMATION
  Report Type: Spontaneous
  Country: IT (occurrence: IT)
  Receive Date: 20190903
  Receipt Date: 20190918
  Transmission Date: 20191005
  Serious: Yes (Death)
  Sender: FDA-Public Use
  Company Number: PHHY2019IT202840

PATIENT
  Age: 56 Year
  Sex: Female

DRUGS (3)
  1. CEFAZOLIN SODIUM. [Suspect]
     Active Substance: CEFAZOLIN SODIUM
     Indication: BACTERIAL SEPSIS
     Dosage: 6 G, QD
     Route: 042
     Dates: start: 20190220
  2. PIPERACILLIN AND TAZOBACTAM [Suspect]
     Active Substance: PIPERACILLIN SODIUM\TAZOBACTAM SODIUM
     Indication: SEPTIC SHOCK
     Dosage: 4.5 G, QD
     Route: 042
     Dates: start: 20190220
  3. FLUCONAZOLE. [Suspect]
     Active Substance: FLUCONAZOLE
     Indication: FUNGAL SEPSIS
     Dosage: 200 MG, QD
     Route: 042

REACTIONS (2)
  - Hypotension [Fatal]
  - Product preparation error [Fatal]

NARRATIVE: CASE EVENT DATE: 20190220
